FAERS Safety Report 23975755 (Version 5)
Quarter: 2024Q4

REPORT INFORMATION
  Report Type: Spontaneous
  Country: JP (occurrence: JP)
  Receive Date: 20240614
  Receipt Date: 20241017
  Transmission Date: 20250114
  Serious: Yes (Death, Life-Threatening)
  Sender: EISAI
  Company Number: JP-Eisai-202402950_LEN-EC_P_1

PATIENT
  Age: 77 Year
  Sex: Female

DRUGS (6)
  1. LENVIMA [Suspect]
     Active Substance: LENVATINIB
     Indication: Endometrial cancer
     Dosage: DOSE AND FREQUENCY UNKNOWN
     Route: 048
     Dates: start: 20220404, end: 20220501
  2. LENVIMA [Suspect]
     Active Substance: LENVATINIB
     Route: 048
     Dates: start: 20220502, end: 20220605
  3. LENVIMA [Suspect]
     Active Substance: LENVATINIB
     Route: 048
     Dates: start: 20220606, end: 20220911
  4. LENVIMA [Suspect]
     Active Substance: LENVATINIB
     Route: 048
     Dates: start: 20220912, end: 20240605
  5. KEYTRUDA [Suspect]
     Active Substance: PEMBROLIZUMAB
     Indication: Endometrial cancer
     Dosage: DOSE AND FREQUNECY UNKNOWN
     Route: 042
     Dates: start: 20220404, end: 20240408
  6. LEVOTHYROXINE [Concomitant]
     Active Substance: LEVOTHYROXINE
     Indication: Product used for unknown indication
     Dosage: DOSE AND FREQUENCY UNKNOWN

REACTIONS (2)
  - Multiple organ dysfunction syndrome [Fatal]
  - Dehydration [Fatal]

NARRATIVE: CASE EVENT DATE: 20240601
